FAERS Safety Report 14552892 (Version 3)
Quarter: 2018Q4

REPORT INFORMATION
  Report Type: Spontaneous
  Country: JP (occurrence: JP)
  Receive Date: 20180220
  Receipt Date: 20181012
  Transmission Date: 20190204
  Serious: Yes (Death, Life-Threatening, Hospitalization)
  Sender: FDA-Public Use
  Company Number: JP-ACTELION-A-CH2018-167909

PATIENT
  Age: 7 Month
  Sex: Female
  Weight: 4.2 kg

DRUGS (17)
  1. UPTRAVI [Suspect]
     Active Substance: SELEXIPAG
     Dosage: 0.08 MG, BID
     Route: 048
     Dates: start: 20170928, end: 20171004
  2. DOPAMINE [Concomitant]
     Active Substance: DOPAMINE\DOPAMINE HYDROCHLORIDE
     Indication: CARDIAC FAILURE
     Dosage: 16 MG, UNK
     Dates: start: 20171219, end: 20171220
  3. SYNAGIS [Concomitant]
     Active Substance: PALIVIZUMAB
     Dosage: 70 MG, UNK
     Dates: start: 20171102, end: 20171102
  4. UPTRAVI [Suspect]
     Active Substance: SELEXIPAG
     Dosage: 0.04 MG, BID
     Route: 048
     Dates: start: 20170914, end: 20170920
  5. UPTRAVI [Suspect]
     Active Substance: SELEXIPAG
     Dosage: 0.06 MG, BID
     Route: 048
     Dates: start: 20170921, end: 20170927
  6. UPTRAVI [Suspect]
     Active Substance: SELEXIPAG
     Dosage: 0.12 MG, BID
     Route: 048
     Dates: start: 20171103, end: 20171128
  7. UPTRAVI [Suspect]
     Active Substance: SELEXIPAG
     Indication: PULMONARY ARTERIAL HYPERTENSION
     Dosage: 0.16 MG, BID
     Route: 048
     Dates: start: 20171215, end: 20171218
  8. UPTRAVI [Suspect]
     Active Substance: SELEXIPAG
     Dosage: 0.1 MG, BID
     Route: 048
     Dates: start: 20171005, end: 20171102
  9. UPTRAVI [Suspect]
     Active Substance: SELEXIPAG
     Dosage: 0.14 MG, BID
     Route: 048
     Dates: start: 20171129, end: 20171214
  10. INCREMIN [Concomitant]
     Active Substance: FERRIC PYROPHOSPHATE
     Dosage: 10 MG, QD
     Dates: start: 20170816, end: 20171015
  11. TRACLEER [Concomitant]
     Active Substance: BOSENTAN
     Indication: PULMONARY ARTERIAL HYPERTENSION
     Dosage: 16 MG, QD
     Dates: start: 20170829, end: 20171218
  12. SYNAGIS [Concomitant]
     Active Substance: PALIVIZUMAB
     Indication: ANTIVIRAL PROPHYLAXIS
     Dosage: 70 MG, QD
     Dates: start: 20171002, end: 20171002
  13. UPTRAVI [Suspect]
     Active Substance: SELEXIPAG
     Dosage: 0.02 MG, BID
     Route: 048
     Dates: start: 20170903, end: 20170913
  14. ADCIRCA [Concomitant]
     Active Substance: TADALAFIL
     Indication: PULMONARY ARTERIAL HYPERTENSION
     Dosage: 4 MG, QD
     Dates: start: 20170816, end: 20171218
  15. SYNAGIS [Concomitant]
     Active Substance: PALIVIZUMAB
     Dosage: 70 MG, UNK
     Dates: start: 20171214, end: 20171214
  16. FUROSEMIDE. [Concomitant]
     Active Substance: FUROSEMIDE
     Indication: CARDIAC FAILURE
     Dosage: 2 MG, QD
     Dates: start: 20170317, end: 20171004
  17. OPSUMIT [Concomitant]
     Active Substance: MACITENTAN
     Indication: PULMONARY ARTERIAL HYPERTENSION
     Dosage: UNK
     Route: 048
     Dates: start: 201708, end: 201712

REACTIONS (9)
  - Metabolic acidosis [Not Recovered/Not Resolved]
  - Cardiac failure [Not Recovered/Not Resolved]
  - Insomnia [Not Recovered/Not Resolved]
  - Pulmonary arterial hypertension [Fatal]
  - Electrocardiogram T wave inversion [Not Recovered/Not Resolved]
  - Disease progression [Fatal]
  - Upper respiratory tract inflammation [Recovered/Resolved]
  - Acute respiratory failure [Not Recovered/Not Resolved]
  - Gastritis [Not Recovered/Not Resolved]

NARRATIVE: CASE EVENT DATE: 20171019
